FAERS Safety Report 8963264 (Version 1)
Quarter: 2012Q4

REPORT INFORMATION
  Report Type: 
  Country: US (occurrence: US)
  Receive Date: 20121213
  Receipt Date: 20121213
  Transmission Date: 20130627
  Serious: Yes (Other)
  Sender: FDA-Public Use
  Company Number: US-PFIZER INC-2012313582

PATIENT
  Age: 70 Year
  Sex: Female
  Weight: 44.44 kg

DRUGS (9)
  1. CHANTIX [Suspect]
     Indication: SMOKING CESSATION THERAPY
     Dosage: UNK
     Route: 048
  2. CHANTIX [Suspect]
     Dosage: 0.5 mg, 1x/day
     Route: 048
  3. CHANTIX [Suspect]
     Dosage: UNK
     Route: 048
     Dates: start: 2012, end: 201212
  4. PLAVIX [Concomitant]
     Dosage: UNK
  5. NEXIUM [Concomitant]
     Dosage: UNK
  6. TYLENOL WITH CODEINE #3 [Concomitant]
     Dosage: UNK
  7. METHOCARBAMOL [Concomitant]
     Dosage: UNK
  8. DULERA [Concomitant]
     Dosage: UNK
  9. PROMETHAZINE [Concomitant]
     Indication: NAUSEA
     Dosage: UNK

REACTIONS (2)
  - Lung disorder [Unknown]
  - Pneumonia [Unknown]
